FAERS Safety Report 9231116 (Version 1)
Quarter: 2013Q2

REPORT INFORMATION
  Report Type: Spontaneous
  Country: US (occurrence: US)
  Receive Date: 20130415
  Receipt Date: 20130415
  Transmission Date: 20140414
  Serious: No
  Sender: FDA-Public Use
  Company Number: US-009507513-1304USA002806

PATIENT
  Sex: 0

DRUGS (14)
  1. VIOXX [Suspect]
     Route: 048
  2. DRIXORAL NONDROWSY [Suspect]
     Route: 048
  3. ASMANEX TWISTHALER [Concomitant]
     Indication: ASTHMA
     Dosage: 1 PUFF DAILY IN THE EVENING
     Route: 055
  4. PROAIR (FLUTICASONE PROPIONATE) [Concomitant]
     Indication: ASTHMA
     Dosage: 2 PUFFS TWICE A DAY
     Route: 055
  5. CELEBREX [Concomitant]
     Indication: BACK PAIN
     Dosage: 1 CAPSULE BY MOUTH ONCE DAILY
     Route: 048
  6. CELEBREX [Concomitant]
     Indication: ARTHRITIS
  7. GABAPENTIN [Concomitant]
     Indication: BACK PAIN
     Dosage: 7 CAPS DAILY: TAKE 1CAPSULE EVERY AM, 1 CAPSULE AT NOON AND 5 CAPSULES AT BEDTIME
     Route: 048
  8. PERCOCET [Concomitant]
     Indication: BACK PAIN
     Dosage: 1 TABLET EVERY 4 HOURS AS NEEDED
     Route: 048
  9. OLANZAPINE [Concomitant]
     Indication: BIPOLAR DISORDER
     Dosage: 0.5 TABLET AT BEDTIME
     Route: 048
  10. DIVALPROEX SODIUM [Concomitant]
     Indication: BIPOLAR DISORDER
     Dosage: 3 TABLET DAILY TAKE 1 TABLET AT NOON AND 2 TABLET AT BEDTIME
     Route: 048
  11. DIVALPROEX SODIUM [Concomitant]
     Indication: MIGRAINE WITH AURA
  12. NITROSTAT [Concomitant]
     Indication: CHEST PAIN
     Dosage: DISSOLVE 1 TABLET UNDER TONGUE EVERY 5 MIN UP TO 3 DOSES AS NEEDED
     Route: 060
  13. POLYETHYLENE GLYCOL [Concomitant]
     Indication: CONSTIPATION
     Dosage: 2 CAPSULES IN 12 OUNCES OF WATER ONCE DAILY
     Route: 048
  14. DOCUSATE SODIUM (+) SENNA [Concomitant]
     Indication: CONSTIPATION
     Dosage: 4 TABLET EVERY MORNING
     Route: 048

REACTIONS (8)
  - Bipolar disorder [Unknown]
  - Drug hypersensitivity [Unknown]
  - Asthma [Unknown]
  - Back pain [Unknown]
  - Migraine with aura [Unknown]
  - Chest pain [Unknown]
  - Arthritis [Unknown]
  - Constipation [Unknown]
